FAERS Safety Report 10096151 (Version 2)
Quarter: 2014Q2

REPORT INFORMATION
  Report Type: Spontaneous
  Country: US (occurrence: US)
  Receive Date: 20140422
  Receipt Date: 20140515
  Transmission Date: 20141212
  Serious: Yes (Other)
  Sender: FDA-Public Use
  Company Number: US-ASTRAZENECA-2014SE26263

PATIENT
  Age: 71 Year
  Sex: Female
  Weight: 54.4 kg

DRUGS (7)
  1. ZESTRIL [Suspect]
     Indication: HYPERTENSION
     Route: 048
     Dates: start: 1997, end: 201403
  2. ZESTRIL [Suspect]
     Indication: HYPERTENSION
     Dosage: GENERIC LISINOPRIL
     Route: 048
     Dates: start: 2012
  3. CELLCEPT [Concomitant]
     Indication: MYASTHENIA GRAVIS
     Route: 048
     Dates: start: 201311
  4. MESTINON [Concomitant]
     Indication: MYASTHENIA GRAVIS
     Route: 048
     Dates: start: 20130703
  5. PREDNISONE [Concomitant]
     Indication: MYASTHENIA GRAVIS
     Route: 048
     Dates: start: 201309
  6. PREDNISONE [Concomitant]
     Indication: MYASTHENIA GRAVIS
     Dosage: MG TWO TIMES A DAY EVERY OTHER DAY
     Route: 048
  7. ARMUR THYROID [Concomitant]
     Indication: HYPOTHYROIDISM
     Route: 048

REACTIONS (10)
  - Myasthenia gravis [Unknown]
  - Dyspnoea [Unknown]
  - Dysphonia [Not Recovered/Not Resolved]
  - Food allergy [Unknown]
  - Rash [Unknown]
  - Diarrhoea [Unknown]
  - Asthenia [Unknown]
  - Diplopia [Unknown]
  - Cough [Unknown]
  - Hypotension [Unknown]
